FAERS Safety Report 22382383 (Version 1)
Quarter: 2023Q2

REPORT INFORMATION
  Report Type: Spontaneous
  Country: IT (occurrence: IT)
  Receive Date: 20230530
  Receipt Date: 20230530
  Transmission Date: 20230722
  Serious: Yes (Hospitalization)
  Sender: FDA-Public Use
  Company Number: IT-STRIDES ARCOLAB LIMITED-2023SP007902

PATIENT
  Age: 61 Year
  Sex: Female
  Weight: 70 kg

DRUGS (2)
  1. TACROLIMUS [Suspect]
     Active Substance: TACROLIMUS
     Indication: Immunosuppressant drug therapy
     Dosage: 0.032 MILLIGRAM/KILOGRAM PER DAY
     Route: 048
  2. TACROLIMUS [Suspect]
     Active Substance: TACROLIMUS
     Indication: Liver transplant
     Dosage: UNK (DOSE WAS ADJUSTED TO THE DESIRED BLOOD TROUGH LEVELS OF 10 TO 12 NG/ML)
     Route: 048

REACTIONS (2)
  - Locked-in syndrome [Recovered/Resolved]
  - Dysarthria [Recovered/Resolved]
